FAERS Safety Report 5653877-6 (Version None)
Quarter: 2008Q1

REPORT INFORMATION
  Report Type: 
  Country: None (occurrence: None)
  Receive Date: 20080306
  Receipt Date: 20080122
  Transmission Date: 20080703
  Serious: Yes (Death)
  Sender: FDA-Public Use
  Company Number: GBWYE832301SEP06

PATIENT
  Sex: Male

DRUGS (5)
  1. TIGECYCLINE [Suspect]
     Indication: ACINETOBACTER INFECTION
     Dosage: UNKNOWN
     Route: 042
     Dates: start: 20060626
  2. TIGECYCLINE [Suspect]
     Indication: MULTI-ORGAN FAILURE
  3. TIGECYCLINE [Suspect]
     Indication: RENAL FAILURE
  4. TIGECYCLINE [Suspect]
     Indication: SEPSIS
  5. COLISTIN SULFATE [Suspect]
     Indication: ACINETOBACTER INFECTION
     Dosage: UNKNOWN
     Dates: end: 20060624

REACTIONS (6)
  - ACINETOBACTER INFECTION [None]
  - CONCOMITANT DISEASE PROGRESSION [None]
  - CONDITION AGGRAVATED [None]
  - DISEASE PROGRESSION [None]
  - HEAD INJURY [None]
  - MULTI-ORGAN FAILURE [None]
